FAERS Safety Report 5626966-X (Version None)
Quarter: 2008Q1

REPORT INFORMATION
  Report Type: 
  Country: None (occurrence: None)
  Receive Date: 20080130
  Receipt Date: 20071106
  Transmission Date: 20080703
  Serious: Yes (Other)
  Sender: FDA-Public Use
  Company Number: US-WYE-H01184407

PATIENT
  Age: 62 Year

DRUGS (9)
  1. CORDARONE [Suspect]
     Indication: ATRIAL FIBRILLATION
     Dosage: 400, 200, 100 MG 1 X PER 1 DAY, ORAL
     Route: 048
     Dates: start: 19980101, end: 19980101
  2. CORDARONE [Suspect]
     Indication: ATRIAL FIBRILLATION
     Dosage: 400, 200, 100 MG 1 X PER 1 DAY, ORAL
     Route: 048
     Dates: start: 19980724, end: 19980101
  3. CORDARONE [Suspect]
     Indication: ATRIAL FIBRILLATION
     Dosage: 400, 200, 100 MG 1 X PER 1 DAY, ORAL
     Route: 048
     Dates: start: 19980101, end: 19981201
  4. GLYBURIDE [Concomitant]
  5. VASOTEC [Concomitant]
  6. POTASSIUM CHLORIDE [Concomitant]
  7. CARDIZEM [Concomitant]
  8. LANOXIN [Concomitant]
  9. BUMEX [Concomitant]

REACTIONS (1)
  - OPTIC NEUROPATHY [None]
